FAERS Safety Report 7176845-4 (Version None)
Quarter: 2010Q4

REPORT INFORMATION
  Report Type: 
  Country: None (occurrence: None)
  Receive Date: 20101220
  Receipt Date: 20101209
  Transmission Date: 20110411
  Serious: Yes (Other)
  Sender: FDA-Public Use
  Company Number: MY-BRISTOL-MYERS SQUIBB COMPANY-15449200

PATIENT
  Age: 50 Year
  Sex: Female

DRUGS (2)
  1. APROVEL [Suspect]
     Route: 048
  2. DILTIAZEM HCL [Concomitant]

REACTIONS (1)
  - RENAL FAILURE ACUTE [None]
